FAERS Safety Report 23052748 (Version 4)
Quarter: 2023Q4

REPORT INFORMATION
  Report Type: Spontaneous
  Country: US (occurrence: US)
  Receive Date: 20231011
  Receipt Date: 20231122
  Transmission Date: 20240110
  Serious: Yes (Other)
  Sender: FDA-Public Use
  Company Number: US-BRISTOL-MYERS SQUIBB COMPANY-2023-144060

PATIENT
  Age: 76 Year
  Sex: Male
  Weight: 63.5 kg

DRUGS (2)
  1. LENALIDOMIDE [Suspect]
     Active Substance: LENALIDOMIDE
     Indication: Plasma cell myeloma
     Route: 048
     Dates: start: 20230928
  2. LENALIDOMIDE [Suspect]
     Active Substance: LENALIDOMIDE
     Dosage: FREQUENCY: EVERY DAY FOR 21 DAYS THEN NONE FOR 7 DAYS .REPEAT EVERY 28 DAYS
     Route: 048
     Dates: start: 20230920

REACTIONS (8)
  - Hyperhidrosis [Unknown]
  - Dizziness [Unknown]
  - Constipation [Unknown]
  - Taste disorder [Unknown]
  - Weight decreased [Unknown]
  - Full blood count decreased [Not Recovered/Not Resolved]
  - Gout [Unknown]
  - Peripheral swelling [Not Recovered/Not Resolved]
